FAERS Safety Report 20821866 (Version 1)
Quarter: 2022Q2

REPORT INFORMATION
  Report Type: Spontaneous
  Country: US (occurrence: None)
  Receive Date: 20220512
  Receipt Date: 20220512
  Transmission Date: 20220721
  Serious: Yes (Other)
  Sender: FDA-Public Use
  Company Number: None

PATIENT
  Sex: Female

DRUGS (1)
  1. BOTOX [Suspect]
     Active Substance: ONABOTULINUMTOXINA
     Indication: Migraine
     Dosage: INJECT 200 UNITS IN THE MUSCLE EVERY 90 DAYS?
     Route: 030
     Dates: start: 20201210

REACTIONS (1)
  - Cerebrovascular accident [None]
